FAERS Safety Report 5311262-0 (Version None)
Quarter: 2007Q2

REPORT INFORMATION
  Report Type: 
  Country: None (occurrence: None)
  Receive Date: 20070430
  Receipt Date: 20070419
  Transmission Date: 20071010
  Serious: Yes (Hospitalization)
  Sender: FDA-Public Use
  Company Number: PHBS2007US06837

PATIENT
  Age: 4 Month
  Sex: Female

DRUGS (7)
  1. CYCLOSPORINE [Suspect]
     Indication: CORD BLOOD TRANSPLANT THERAPY
     Route: 065
  2. METHYLPREDNISOLONE 16MG TAB [Concomitant]
     Indication: CORD BLOOD TRANSPLANT THERAPY
     Route: 065
  3. ATGAM [Concomitant]
     Indication: CORD BLOOD TRANSPLANT THERAPY
     Route: 065
  4. BUSULFAN [Concomitant]
     Indication: CORD BLOOD TRANSPLANT THERAPY
     Route: 042
  5. CYCLOPHOSPHAMIDE [Concomitant]
     Indication: CORD BLOOD TRANSPLANT THERAPY
     Route: 042
  6. PREDNISONE TAB [Concomitant]
     Indication: CORD BLOOD TRANSPLANT THERAPY
     Dosage: 1 MG/KG/D
     Route: 065
  7. PREDNISONE TAB [Concomitant]
     Dosage: 6 MG/KG/D
     Route: 065

REACTIONS (7)
  - ANAEMIA HAEMOLYTIC AUTOIMMUNE [None]
  - BLOOD IMMUNOGLOBULIN G INCREASED [None]
  - COMPLEMENT FACTOR DECREASED [None]
  - COOMBS POSITIVE HAEMOLYTIC ANAEMIA [None]
  - HAEMOGLOBIN DECREASED [None]
  - HEPATOTOXICITY [None]
  - RETICULOCYTE COUNT INCREASED [None]
